FAERS Safety Report 23944495 (Version 1)
Quarter: 2024Q2

REPORT INFORMATION
  Report Type: Spontaneous
  Country: FR (occurrence: FR)
  Receive Date: 20240606
  Receipt Date: 20240606
  Transmission Date: 20240715
  Serious: Yes (Death, Other)
  Sender: FDA-Public Use
  Company Number: None

PATIENT
  Age: 72 Year
  Sex: Male
  Weight: 66 kg

DRUGS (7)
  1. CHLORPROMAZINE [Suspect]
     Active Substance: CHLORPROMAZINE
     Indication: Nausea
     Dosage: 12.5 MG, QD
     Route: 042
     Dates: start: 20240430, end: 20240504
  2. VALACYCLOVIR HYDROCHLORIDE [Suspect]
     Active Substance: VALACYCLOVIR HYDROCHLORIDE
     Indication: Infection prophylaxis
     Dosage: 500 MG, BID
     Route: 048
     Dates: start: 2023, end: 20240503
  3. CYTARABINE [Suspect]
     Active Substance: CYTARABINE
     Indication: Bone marrow conditioning regimen
     Dosage: 1000 MG/M2, QDN EQUAL TO 1730 MG
     Route: 042
     Dates: start: 20240427, end: 20240501
  4. METOCLOPRAMIDE HYDROCHLORIDE [Suspect]
     Active Substance: METOCLOPRAMIDE HYDROCHLORIDE
     Indication: Nausea
     Dosage: 10 MG, 10 MG ON DEMAND
     Route: 042
     Dates: start: 20240426, end: 20240504
  5. POSACONAZOLE [Suspect]
     Active Substance: POSACONAZOLE
     Indication: Infection prophylaxis
     Dosage: 300 MG, QD
     Route: 048
     Dates: start: 2023, end: 20240506
  6. CLOFARABINE [Suspect]
     Active Substance: CLOFARABINE
     Indication: Bone marrow conditioning regimen
     Dosage: 30 MG/M2, QD, EQUAL TO 52 MG
     Route: 042
     Dates: start: 20240427, end: 20240501
  7. PIPERACILLIN SODIUM\TAZOBACTAM SODIUM [Suspect]
     Active Substance: PIPERACILLIN SODIUM\TAZOBACTAM SODIUM
     Indication: Pyrexia
     Dosage: 1 DF, Q6H
     Route: 042
     Dates: start: 20240428, end: 20240504

REACTIONS (1)
  - Encephalopathy [Fatal]

NARRATIVE: CASE EVENT DATE: 20240504
